FAERS Safety Report 23605053 (Version 1)
Quarter: 2024Q1

REPORT INFORMATION
  Report Type: Spontaneous
  Country: US (occurrence: None)
  Receive Date: 20240306
  Receipt Date: 20240306
  Transmission Date: 20240410
  Serious: Yes (Life-Threatening)
  Sender: FDA-Public Use
  Company Number: None

PATIENT
  Age: 42 Year
  Sex: Male
  Weight: 92.25 kg

DRUGS (4)
  1. CITALOPRAM [Suspect]
     Active Substance: CITALOPRAM HYDROBROMIDE
     Indication: Anhedonia
     Dosage: 1 TABLET ORAL?
     Route: 048
     Dates: start: 20230710, end: 20240126
  2. ADVAIR DISKUS [Concomitant]
     Active Substance: FLUTICASONE PROPIONATE\SALMETEROL XINAFOATE
  3. ALBUTEROL [Concomitant]
     Active Substance: ALBUTEROL
  4. LORATADINE [Concomitant]
     Active Substance: LORATADINE

REACTIONS (13)
  - Syncope [None]
  - Middle insomnia [None]
  - Heart rate decreased [None]
  - Pulse absent [None]
  - Blood pressure decreased [None]
  - Emotional distress [None]
  - Arrhythmia [None]
  - Syncope [None]
  - Shock [None]
  - Pallor [None]
  - Cold sweat [None]
  - Disorientation [None]
  - Therapy cessation [None]

NARRATIVE: CASE EVENT DATE: 20231211
